FAERS Safety Report 21520479 (Version 1)
Quarter: 2022Q4

REPORT INFORMATION
  Report Type: Spontaneous
  Country: US (occurrence: None)
  Receive Date: 20221027
  Receipt Date: 20221027
  Transmission Date: 20230113
  Serious: Yes (Other)
  Sender: FDA-Public Use
  Company Number: None

PATIENT
  Age: 69 Year
  Sex: Female
  Weight: 57.61 kg

DRUGS (1)
  1. PROLIA [Suspect]
     Active Substance: DENOSUMAB
     Dosage: OTHER FREQUENCY : EVERY 6 MONTHS;?
     Route: 058

REACTIONS (2)
  - Mouth swelling [None]
  - Swollen tongue [None]

NARRATIVE: CASE EVENT DATE: 20220705
